FAERS Safety Report 18468459 (Version 1)
Quarter: 2020Q4

REPORT INFORMATION
  Report Type: Spontaneous
  Country: US (occurrence: US)
  Receive Date: 20201104
  Receipt Date: 20201104
  Transmission Date: 20210114
  Serious: Yes (Hospitalization)
  Sender: FDA-Public Use
  Company Number: None

PATIENT
  Age: 34 Year
  Sex: Female
  Weight: 79 kg

DRUGS (1)
  1. SODIUM OXYBATE (SODIUM OXYBATE 500MG/ML SOLN, ORAL) [Suspect]
     Active Substance: SODIUM OXYBATE
     Indication: NARCOLEPSY
     Route: 048
     Dates: start: 20100801, end: 20200812

REACTIONS (6)
  - Agitation [None]
  - Depression [None]
  - Hallucination [None]
  - Therapy cessation [None]
  - Psychotic disorder [None]
  - Confusional state [None]

NARRATIVE: CASE EVENT DATE: 20181224
